FAERS Safety Report 19783385 (Version 1)
Quarter: 2021Q3

REPORT INFORMATION
  Report Type: Spontaneous
  Country: US (occurrence: US)
  Receive Date: 20210901
  Receipt Date: 20210901
  Transmission Date: 20211014
  Serious: Yes (Other)
  Sender: FDA-Public Use
  Company Number: None

PATIENT
  Age: 32 Year
  Sex: Female
  Weight: 155.58 kg

DRUGS (7)
  1. ATIVAN [Suspect]
     Active Substance: LORAZEPAM
     Indication: ANXIETY
  2. ALBUTEROL. [Concomitant]
     Active Substance: ALBUTEROL
  3. FOCALIN [Suspect]
     Active Substance: DEXMETHYLPHENIDATE HYDROCHLORIDE
     Indication: ATTENTION DEFICIT HYPERACTIVITY DISORDER
  4. LATUDA [Suspect]
     Active Substance: LURASIDONE HYDROCHLORIDE
     Indication: DEPRESSION
  5. RESTORIL [Suspect]
     Active Substance: TEMAZEPAM
     Indication: INSOMNIA
  6. ANTIBIOTIC [Concomitant]
     Active Substance: UNSPECIFIED INGREDIENT
  7. AZITHROMYCIN ANHYDROUS. [Concomitant]
     Active Substance: AZITHROMYCIN ANHYDROUS

REACTIONS (6)
  - Maternal exposure during pregnancy [None]
  - Bacterial vaginosis [None]
  - Influenza [None]
  - Foetal exposure during pregnancy [None]
  - Fungal infection [None]
  - Pneumonia [None]

NARRATIVE: CASE EVENT DATE: 20190729
